FAERS Safety Report 6181524-6 (Version None)
Quarter: 2009Q2

REPORT INFORMATION
  Report Type: 
  Country: None (occurrence: None)
  Receive Date: 20090501
  Receipt Date: 20090114
  Transmission Date: 20091009
  Serious: Yes (Death)
  Sender: FDA-Public Use
  Company Number: 000228

PATIENT
  Age: 67 Year
  Sex: Male
  Weight: 76 kg

DRUGS (11)
  1. ACETAMINOPHEN W/ CODEINE [Suspect]
     Indication: ANXIETY
     Dosage: (ORAL)
     Route: 048
     Dates: start: 20070521, end: 20070525
  2. ACETAMINOPHEN W/ CODEINE [Suspect]
     Indication: PAIN
     Dosage: (ORAL)
     Route: 048
     Dates: start: 20070521, end: 20070525
  3. ACETAMINOPHEN W/ CODEINE [Suspect]
     Indication: PSYCHOTIC DISORDER
     Dosage: (ORAL)
     Route: 048
     Dates: start: 20070521, end: 20070525
  4. OLANZAPINE [Suspect]
     Dosage: (15 MG BID ORAL)
     Route: 048
     Dates: start: 20030101
  5. ASPIRIN [Concomitant]
  6. CEFUROXIME SODIUM [Concomitant]
  7. CHLORPROMAZINE [Concomitant]
  8. CLEXANE [Concomitant]
  9. DICLOFENAC [Concomitant]
  10. MORPHINE [Concomitant]
  11. PROPRANOLOL /00030001/ [Concomitant]

REACTIONS (18)
  - ANALGESIC DRUG LEVEL ABOVE THERAPEUTIC [None]
  - AORTIC ARTERIOSCLEROSIS [None]
  - ARTERIOSCLEROSIS CORONARY ARTERY [None]
  - ASPIRATION [None]
  - BRONCHOPNEUMONIA [None]
  - CARDIAC ARREST [None]
  - DRUG LEVEL INCREASED [None]
  - FALL [None]
  - FEMORAL NECK FRACTURE [None]
  - LOSS OF CONSCIOUSNESS [None]
  - ORTHOSTATIC HYPOTENSION [None]
  - OVERDOSE [None]
  - POISONING [None]
  - PULMONARY CONGESTION [None]
  - PULMONARY OEDEMA [None]
  - RESPIRATORY ARREST [None]
  - SOMNOLENCE [None]
  - UNRESPONSIVE TO STIMULI [None]
